FAERS Safety Report 5877529-2 (Version None)
Quarter: 2008Q3

REPORT INFORMATION
  Report Type: 
  Country: None (occurrence: None)
  Receive Date: 20080911
  Receipt Date: 20080903
  Transmission Date: 20090109
  Serious: Yes (Death, Other)
  Sender: FDA-Public Use
  Company Number: DE-CELGENEUS-062-21880-08081473

PATIENT
  Age: 55 Year
  Sex: Male

DRUGS (2)
  1. REVLIMID [Suspect]
     Indication: MULTIPLE MYELOMA
     Route: 048
     Dates: start: 20080411, end: 20080627
  2. DEXAMETHASONE [Concomitant]
     Indication: MULTIPLE MYELOMA
     Route: 065
     Dates: start: 20080401, end: 20080601

REACTIONS (5)
  - DISTURBANCE IN ATTENTION [None]
  - FATIGUE [None]
  - LISTLESS [None]
  - MULTIPLE MYELOMA [None]
  - POLYNEUROPATHY [None]
